FAERS Safety Report 16327952 (Version 1)
Quarter: 2019Q2

REPORT INFORMATION
  Report Type: Spontaneous
  Country: FR (occurrence: FR)
  Receive Date: 20190518
  Receipt Date: 20190518
  Transmission Date: 20190711
  Serious: Yes (Death, Other)
  Sender: FDA-Public Use
  Company Number: FR-AUROBINDO-AUR-APL-2019-025779

PATIENT

DRUGS (1)
  1. TRAMADOL. [Suspect]
     Active Substance: TRAMADOL
     Indication: PAIN
     Dosage: UNK,UNSPECIFIED
     Route: 048
     Dates: start: 201807, end: 201807

REACTIONS (2)
  - Decompression sickness [Fatal]
  - Cardiac arrest [Fatal]

NARRATIVE: CASE EVENT DATE: 201807
